FAERS Safety Report 26198593 (Version 1)
Quarter: 2025Q4

REPORT INFORMATION
  Report Type: Spontaneous
  Country: US (occurrence: US)
  Receive Date: 20251224
  Receipt Date: 20251224
  Transmission Date: 20260117
  Serious: Yes (Other)
  Sender: ARDELYX
  Company Number: US-ARDELYX-2025ARDX008066

PATIENT
  Age: 80 Year
  Sex: Male

DRUGS (2)
  1. IBSRELA [Suspect]
     Active Substance: TENAPANOR HYDROCHLORIDE
     Indication: Constipation
     Dosage: 50 MG, BID (IMMEDIATELY BEFORE MEALS TWICE A DAY)
     Route: 048
     Dates: start: 20251021
  2. IBSRELA [Suspect]
     Active Substance: TENAPANOR HYDROCHLORIDE
     Indication: Irritable bowel syndrome
     Dosage: 50 MG, QD
     Route: 065
     Dates: start: 2025

REACTIONS (3)
  - Hepatic fibrosis [Unknown]
  - Intentional underdose [Unknown]
  - Inappropriate schedule of product administration [Unknown]

NARRATIVE: CASE EVENT DATE: 20251021
